FAERS Safety Report 9515000 (Version 1)
Quarter: 2013Q1

REPORT INFORMATION
  Report Type: Spontaneous
  Country: US (occurrence: None)
  Receive Date: 20130305
  Receipt Date: 20130305
  Transmission Date: 20140127
  Serious: Yes (Other)
  Sender: FDA-Public Use
  Company Number: 163-21880-12112729

PATIENT
  Age: 67 Year
  Sex: Male

DRUGS (18)
  1. REVLIMID [Suspect]
     Indication: PLASMA CELL MYELOMA
     Dosage: 25 MG, 1 IN 1 D, PO
     Route: 048
     Dates: start: 201003
  2. CEFUROXINE (TABLETS) [Concomitant]
  3. VELCADE (UNKNOWN) [Concomitant]
  4. VANCOCIN HCL (VANCOMYCIN HYDROCHLORIDE) (CAPSULES) [Concomitant]
  5. ACYCLOVIR (ACICLOVIR) (TABLETS) [Concomitant]
  6. AGGRENOX (ASASANTIN) (CAPSULES) [Concomitant]
  7. ALLEGRA (FEXOFENADINE HYDROCHLORIDE) (TABLETS) [Concomitant]
  8. DECADRON (DEXAMETHASONE) (TABLETS) [Concomitant]
  9. MASONEX (SPRAY (NOT INHALATION) [Concomitant]
  10. PLAVIX (CLOPIDOGREL SULFATE) (TABLETS) [Concomitant]
  11. WA-LFEX (TABLETS) [Concomitant]
  12. BABY ASPIRIN (ACETYLSALICYLIC ACID) (CHEWABLE TABLET) [Concomitant]
  13. VITAMIN B6 (PYRIDOXINE HYDROCHLORIDE) (TABLETS) [Concomitant]
  14. POTASSIUM (POTASSIUM) (TABLETS) [Concomitant]
  15. AVODART (DUTASTERIDE) (CAPSULES) [Concomitant]
  16. VITAMIN D (ERGOCALICIFEROL) (CAPSULES) [Concomitant]
  17. TAMSULOSIN (TAMSULOSIN) (CAPSULES) [Concomitant]
  18. LOSARTAN/HCTZ (TABLETS) [Concomitant]

REACTIONS (2)
  - Platelet count decreased [None]
  - White blood cell count decreased [None]
